FAERS Safety Report 5461074-2 (Version None)
Quarter: 2007Q3

REPORT INFORMATION
  Report Type: 
  Country: None (occurrence: None)
  Receive Date: 20070820
  Receipt Date: 20070228
  Transmission Date: 20080115
  Serious: No
  Sender: FDA-Public Use
  Company Number: TPA2007A00513

PATIENT
  Sex: Female
  Weight: 95.2554 kg

DRUGS (5)
  1. ROZEREM [Suspect]
     Indication: CIRCADIAN RHYTHM SLEEP DISORDER
     Dosage: 8 MG, QHS, PER ORAL
     Route: 048
     Dates: start: 20060602, end: 20070223
  2. ROZEREM [Suspect]
     Indication: INSOMNIA
     Dosage: 8 MG, QHS, PER ORAL
     Route: 048
     Dates: start: 20060602, end: 20070223
  3. ROZEREM [Suspect]
     Indication: MAJOR DEPRESSION
     Dosage: 8 MG, QHS, PER ORAL
     Route: 048
     Dates: start: 20060602, end: 20070223
  4. EFFEXOR XR [Concomitant]
  5. RITALIN [Concomitant]

REACTIONS (1)
  - GALACTORRHOEA [None]
